FAERS Safety Report 25601966 (Version 1)
Quarter: 2025Q3

REPORT INFORMATION
  Report Type: Spontaneous
  Country: US (occurrence: US)
  Receive Date: 20250724
  Receipt Date: 20250724
  Transmission Date: 20251020
  Serious: Yes (Hospitalization)
  Sender: ELI LILLY AND COMPANY
  Company Number: US-ELI_LILLY_AND_COMPANY-US202507012007

PATIENT
  Age: 79 Year
  Sex: Female

DRUGS (4)
  1. TIRZEPATIDE [Interacting]
     Active Substance: TIRZEPATIDE
     Indication: Type 2 diabetes mellitus
     Route: 065
  2. TIRZEPATIDE [Interacting]
     Active Substance: TIRZEPATIDE
     Indication: Weight decreased
  3. METOLAZONE [Interacting]
     Active Substance: METOLAZONE
     Indication: Cardiac failure chronic
     Route: 065
  4. BUMETANIDE [Interacting]
     Active Substance: BUMETANIDE
     Indication: Cardiac failure chronic
     Route: 065

REACTIONS (9)
  - Hyponatraemia [Unknown]
  - Hypertension [Unknown]
  - Tachycardia [Unknown]
  - Drug interaction [Unknown]
  - Respiratory failure [Unknown]
  - Pulmonary oedema [Unknown]
  - Atrial fibrillation [Unknown]
  - Cerebrovascular accident [Unknown]
  - Acute kidney injury [Unknown]
